FAERS Safety Report 24829877 (Version 1)
Quarter: 2025Q1

REPORT INFORMATION
  Report Type: Spontaneous
  Country: US (occurrence: US)
  Receive Date: 20250110
  Receipt Date: 20250110
  Transmission Date: 20250409
  Serious: Yes (Death, Hospitalization, Other)
  Sender: Steriscience PTE
  Company Number: US-STERISCIENCE B.V.-2024-ST-002249

PATIENT
  Age: 24 Year
  Sex: Female

DRUGS (3)
  1. GANCICLOVIR SODIUM [Suspect]
     Active Substance: GANCICLOVIR SODIUM
     Indication: Epstein-Barr virus infection
     Route: 065
  2. BORTEZOMIB [Suspect]
     Active Substance: BORTEZOMIB
     Indication: Natural killer-cell leukaemia
     Route: 065
  3. ALEMTUZUMAB [Suspect]
     Active Substance: ALEMTUZUMAB
     Indication: Natural killer-cell leukaemia
     Route: 065

REACTIONS (5)
  - Condition aggravated [Fatal]
  - Disseminated intravascular coagulation [Fatal]
  - Septic shock [Fatal]
  - Drug ineffective for unapproved indication [Fatal]
  - Maternal exposure during pregnancy [Unknown]
